FAERS Safety Report 21083907 (Version 1)
Quarter: 2022Q3

REPORT INFORMATION
  Report Type: Spontaneous
  Country: US (occurrence: US)
  Receive Date: 20220714
  Receipt Date: 20220714
  Transmission Date: 20221026
  Serious: No
  Sender: FDA-Public Use
  Company Number: US-JAZZ-2022-US-011913

PATIENT
  Sex: Male

DRUGS (16)
  1. EPIDIOLEX [Suspect]
     Active Substance: CANNABIDIOL
     Indication: Lennox-Gastaut syndrome
     Dosage: 8.5 MILLIGRAM, BID
     Route: 048
  2. DIASTATIN [Concomitant]
  3. DYMISTA [Concomitant]
     Active Substance: AZELASTINE HYDROCHLORIDE\FLUTICASONE PROPIONATE
  4. EPIPEN JR [Concomitant]
     Active Substance: EPINEPHRINE
  5. PROVENTIL HFA [Concomitant]
     Active Substance: ALBUTEROL SULFATE
  6. CETIRIZINE HYDROCHLORIDE [Concomitant]
     Active Substance: CETIRIZINE HYDROCHLORIDE
  7. MOTRIN IB [Concomitant]
     Active Substance: IBUPROFEN
  8. KEPPRA XR [Concomitant]
     Active Substance: LEVETIRACETAM
  9. FAMOTIDINE [Concomitant]
     Active Substance: FAMOTIDINE
  10. CLONAZEPAM [Concomitant]
     Active Substance: CLONAZEPAM
  11. VALPROIC ACID [Concomitant]
     Active Substance: VALPROIC ACID
  12. CETIRIZINE HCL [Concomitant]
     Active Substance: CETIRIZINE HYDROCHLORIDE
  13. RANITIDINE HYDROCHLORIDE [Concomitant]
     Active Substance: RANITIDINE HYDROCHLORIDE
  14. MIRALAX [Concomitant]
     Active Substance: POLYETHYLENE GLYCOL 3350
  15. MAGNESIUM [Concomitant]
     Active Substance: MAGNESIUM
  16. AMOXICILLIN\CLAVULANATE POTASSIUM [Concomitant]
     Active Substance: AMOXICILLIN\CLAVULANATE POTASSIUM

REACTIONS (1)
  - Product administration interrupted [Unknown]
